FAERS Safety Report 23172705 (Version 1)
Quarter: 2023Q4

REPORT INFORMATION
  Report Type: Spontaneous
  Country: US (occurrence: None)
  Receive Date: 20231110
  Receipt Date: 20231110
  Transmission Date: 20240110
  Serious: Yes (Hospitalization, Other)
  Sender: FDA-Public Use
  Company Number: 2023A252670

PATIENT

DRUGS (2)
  1. IMFINZI [Suspect]
     Active Substance: DURVALUMAB
  2. COVID VACCINE [Concomitant]

REACTIONS (7)
  - Arterial disorder [Unknown]
  - Thrombosis [Unknown]
  - Pulmonary fibrosis [Unknown]
  - Radiation pneumonitis [Unknown]
  - Localised infection [Unknown]
  - Skin haemorrhage [Unknown]
  - Skin weeping [Unknown]
